FAERS Safety Report 23630362 (Version 1)
Quarter: 2024Q1

REPORT INFORMATION
  Report Type: Report from Study
  Country: IE (occurrence: IE)
  Receive Date: 20240314
  Receipt Date: 20240314
  Transmission Date: 20240410
  Serious: Yes (Hospitalization)
  Sender: FDA-Public Use
  Company Number: IE-JNJFOC-20240330750

PATIENT
  Age: 80 Year
  Sex: Male

DRUGS (7)
  1. ZYTIGA [Suspect]
     Active Substance: ABIRATERONE ACETATE
     Indication: Prostate cancer metastatic
     Route: 048
     Dates: start: 20220411
  2. ATORVASTATIN [Concomitant]
     Active Substance: ATORVASTATIN
     Route: 050
  3. OLMESARTAN [Concomitant]
     Active Substance: OLMESARTAN
     Route: 050
  4. ASPIRIN [Concomitant]
     Active Substance: ASPIRIN
     Route: 050
  5. PREDNISOLONE [Concomitant]
     Active Substance: PREDNISOLONE
     Route: 050
  6. SOLPADEINE [CAFFEINE;CODEINE PHOSPHATE;PARACETAMOL] [Concomitant]
     Dosage: 500/8/30MG 2 N/A (AS REQUIRED)
     Route: 050
  7. LINAGLIPTIN\METFORMIN HYDROCHLORIDE [Concomitant]
     Active Substance: LINAGLIPTIN\METFORMIN HYDROCHLORIDE
     Route: 050

REACTIONS (1)
  - Spinal decompression [Not Recovered/Not Resolved]

NARRATIVE: CASE EVENT DATE: 20240309
